FAERS Safety Report 21296963 (Version 2)
Quarter: 2024Q3

REPORT INFORMATION
  Report Type: Spontaneous
  Country: FR (occurrence: FR)
  Receive Date: 20220906
  Receipt Date: 20240821
  Transmission Date: 20241017
  Serious: Yes (Other)
  Sender: SANOFI AVENTIS
  Company Number: None

PATIENT
  Age: 63 Year
  Sex: Male

DRUGS (3)
  1. SARCLISA [Suspect]
     Active Substance: ISATUXIMAB-IRFC
     Indication: Plasma cell myeloma
     Dosage: 900 MG
     Route: 042
     Dates: start: 20220107, end: 20220708
  2. KYPROLIS [Suspect]
     Active Substance: CARFILZOMIB
     Indication: Plasma cell myeloma
     Dosage: 142 MG
     Route: 042
     Dates: start: 20220408, end: 20220715
  3. EVUSHELD [Suspect]
     Active Substance: CILGAVIMAB\TIXAGEVIMAB
     Indication: Prophylaxis
     Dosage: UNK, QD
     Route: 030
     Dates: start: 20220506, end: 20220506

REACTIONS (1)
  - Haemolysis [Not Recovered/Not Resolved]

NARRATIVE: CASE EVENT DATE: 20220601
